FAERS Safety Report 17008409 (Version 1)
Quarter: 2019Q4

REPORT INFORMATION
  Report Type: Spontaneous
  Country: GB (occurrence: GB)
  Receive Date: 20191108
  Receipt Date: 20191108
  Transmission Date: 20200122
  Serious: Yes (Other)
  Sender: FDA-Public Use
  Company Number: GB-ACCORD-160070

PATIENT
  Age: 84 Year
  Sex: Male

DRUGS (3)
  1. PERINDOPRIL/PERINDOPRIL ERBUMINE [Suspect]
     Active Substance: PERINDOPRIL ERBUMINE
     Indication: PRODUCT USED FOR UNKNOWN INDICATION
     Route: 048
  2. SERTRALINE [Suspect]
     Active Substance: SERTRALINE HYDROCHLORIDE
     Indication: PRODUCT USED FOR UNKNOWN INDICATION
     Route: 048
  3. LETROZOLE. [Suspect]
     Active Substance: LETROZOLE
     Indication: PRODUCT USED FOR UNKNOWN INDICATION
     Route: 048

REACTIONS (4)
  - Abnormal behaviour [Unknown]
  - Hyporesponsive to stimuli [Unknown]
  - Anal incontinence [Unknown]
  - Wrong patient received product [Unknown]

NARRATIVE: CASE EVENT DATE: 20180328
